FAERS Safety Report 5200374-8 (Version None)
Quarter: 2007Q1

REPORT INFORMATION
  Report Type: 
  Country: None (occurrence: None)
  Receive Date: 20070105
  Receipt Date: 20061227
  Transmission Date: 20070707
  Serious: Yes (Other)
  Sender: FDA-Public Use
  Company Number: JP-PFIZER INC-2006156177

PATIENT
  Age: 21 Year
  Sex: Male

DRUGS (6)
  1. GABAPEN [Suspect]
     Dosage: DAILY DOSE:1200MG-FREQ:DAILY
     Route: 048
     Dates: start: 20061122, end: 20061201
  2. ZARONTIN [Concomitant]
     Route: 048
  3. ZONISAMIDE [Concomitant]
     Route: 048
     Dates: start: 20041101
  4. MEILAX [Concomitant]
     Route: 048
     Dates: start: 20041101
  5. PORTOLAC [Concomitant]
     Route: 048
     Dates: start: 20041101
  6. LEVOCARNITINE [Concomitant]
     Route: 048
     Dates: start: 20041101

REACTIONS (3)
  - CONVULSION [None]
  - DECREASED ACTIVITY [None]
  - SOMNOLENCE [None]
